FAERS Safety Report 4554437-0 (Version None)
Quarter: 2005Q1

REPORT INFORMATION
  Report Type: 
  Country: None (occurrence: None)
  Receive Date: 20041227
  Receipt Date: 20041104
  Transmission Date: 20050727
  Serious: No
  Sender: FDA-Public Use
  Company Number: 04P-163-0276020-00

PATIENT
  Age: 79 Year
  Sex: Female
  Weight: 80.7403 kg

DRUGS (13)
  1. HUMIRA 40 MG/ 0.8 ML PRE-FILLED SYRINGE (HUMIRA) (ADALIMUMAB) (ADALIMU [Suspect]
     Indication: RHEUMATOID ARTHRITIS
     Dosage: 40 MG, 1 IN 2 WK, SUBCUTANEOUS
     Route: 058
     Dates: start: 20040801
  2. HYDROPHEN [Concomitant]
  3. PARACETAMOL [Concomitant]
  4. PREDNISONE [Concomitant]
  5. FOLIC ACID [Concomitant]
  6. CALCIUM GLUCONATE [Concomitant]
  7. ALBUTEROL [Suspect]
  8. ASTHMA COR [Concomitant]
  9. AMLODIPINE BESYLATE [Concomitant]
  10. BENICAR [Concomitant]
  11. HYDROCHLOROTHIAZIDE [Concomitant]
  12. PANTOPRAZOLE [Concomitant]
  13. LEFLUNOMIDE [Concomitant]

REACTIONS (5)
  - INJECTION SITE ERYTHEMA [None]
  - INJECTION SITE NODULE [None]
  - INJECTION SITE PRURITUS [None]
  - INJECTION SITE RASH [None]
  - INJECTION SITE SWELLING [None]
